FAERS Safety Report 16308291 (Version 1)
Quarter: 2019Q2

REPORT INFORMATION
  Report Type: Spontaneous
  Country: GB (occurrence: GB)
  Receive Date: 20190514
  Receipt Date: 20190514
  Transmission Date: 20190711
  Serious: Yes (Other)
  Sender: FDA-Public Use
  Company Number: PHHY2019GB108335

PATIENT
  Sex: Female

DRUGS (3)
  1. IMATINIB. [Suspect]
     Active Substance: IMATINIB MESYLATE
     Indication: CHRONIC MYELOID LEUKAEMIA
     Dosage: UNK
     Route: 065
     Dates: start: 1990
  2. DASATINIB. [Suspect]
     Active Substance: DASATINIB
     Indication: CHRONIC MYELOID LEUKAEMIA
     Dosage: UNK
     Route: 065
     Dates: start: 2005
  3. DASATINIB. [Suspect]
     Active Substance: DASATINIB
     Dosage: 20 MG, QD
     Route: 065
     Dates: start: 2014

REACTIONS (3)
  - Fluid retention [Unknown]
  - Gout [Unknown]
  - Left ventricular dysfunction [Unknown]
